FAERS Safety Report 19259474 (Version 1)
Quarter: 2021Q2

REPORT INFORMATION
  Report Type: Spontaneous
  Country: US (occurrence: US)
  Receive Date: 20210514
  Receipt Date: 20210514
  Transmission Date: 20210717
  Serious: No
  Sender: FDA-Public Use
  Company Number: US-ELI_LILLY_AND_COMPANY-US202105003662

PATIENT
  Sex: Female

DRUGS (2)
  1. BAMLANIVIMAB. [Suspect]
     Active Substance: BAMLANIVIMAB
     Indication: COVID-19
     Dosage: 700 MG, SINGLE
     Route: 042
     Dates: start: 20210422, end: 20210422
  2. ETESEVIMAB. [Suspect]
     Active Substance: ETESEVIMAB
     Indication: COVID-19
     Dosage: 1400 MG, SINGLE
     Route: 042
     Dates: start: 20210422, end: 20210422

REACTIONS (12)
  - Chills [Unknown]
  - Headache [Unknown]
  - Nasal congestion [Unknown]
  - Bowel movement irregularity [Unknown]
  - Fatigue [Unknown]
  - Sneezing [Unknown]
  - Productive cough [Unknown]
  - Fatigue [Unknown]
  - Pain [Unknown]
  - Nasopharyngitis [Unknown]
  - Asthenia [Unknown]
  - Nausea [Unknown]

NARRATIVE: CASE EVENT DATE: 20210422
